FAERS Safety Report 6806461-2 (Version None)
Quarter: 2010Q2

REPORT INFORMATION
  Report Type: 
  Country: None (occurrence: None)
  Receive Date: 20100629
  Receipt Date: 20080402
  Transmission Date: 20101027
  Serious: No
  Sender: FDA-Public Use
  Company Number: US-PFIZER INC-2008011709

PATIENT
  Sex: Female

DRUGS (2)
  1. ALPRAZOLAM [Suspect]
     Indication: ANXIETY DISORDER
  2. ALPRAZOLAM [Suspect]
     Indication: PANIC DISORDER

REACTIONS (2)
  - DIZZINESS [None]
  - FEELING ABNORMAL [None]
